FAERS Safety Report 24638452 (Version 1)
Quarter: 2024Q4

REPORT INFORMATION
  Report Type: Spontaneous
  Country: US (occurrence: None)
  Receive Date: 20241119
  Receipt Date: 20241119
  Transmission Date: 20250114
  Serious: No
  Sender: Public
  Company Number: None

PATIENT
  Age: 72 Year
  Sex: Male

DRUGS (1)
  1. ROSUVASTATIN CALCIUM [Suspect]
     Active Substance: ROSUVASTATIN CALCIUM

REACTIONS (3)
  - Aspartate aminotransferase increased [None]
  - Alanine aminotransferase increased [None]
  - Blood creatinine increased [None]

NARRATIVE: CASE EVENT DATE: 20230920
